FAERS Safety Report 10567358 (Version 2)
Quarter: 2014Q4

REPORT INFORMATION
  Report Type: Report from Study
  Country: US (occurrence: US)
  Receive Date: 20141106
  Receipt Date: 20141106
  Transmission Date: 20150529
  Serious: Yes (Life-Threatening, Hospitalization)
  Sender: FDA-Public Use
  Company Number: US-ROCHE-1447578

PATIENT
  Age: 58 Year
  Sex: Male
  Weight: 94.6 kg

DRUGS (22)
  1. TRASTUZUMAB [Suspect]
     Active Substance: TRASTUZUMAB
     Indication: OESOPHAGEAL CANCER METASTATIC
     Dosage: DATE OF LAST DOSE 31/JUL/2014
     Route: 065
     Dates: start: 20140320
  2. OXALIPLATIN. [Concomitant]
     Active Substance: OXALIPLATIN
     Dosage: DATE OF LAST DOSE 31/JUL/2014
     Route: 065
     Dates: start: 20140330
  3. CITALOPRAM [Concomitant]
     Active Substance: CITALOPRAM HYDROBROMIDE
  4. MIRALAX [Concomitant]
     Active Substance: POLYETHYLENE GLYCOL 3350
  5. OXYCODON [Concomitant]
     Active Substance: OXYCODONE
  6. BEVACIZUMAB [Suspect]
     Active Substance: BEVACIZUMAB
     Indication: OESOPHAGEAL CARCINOMA
  7. CAPECITABINE. [Suspect]
     Active Substance: CAPECITABINE
     Indication: OESOPHAGEAL CANCER METASTATIC
     Route: 065
     Dates: start: 20140320, end: 20140804
  8. COMPAZINE [Concomitant]
     Active Substance: PROCHLORPERAZINE MALEATE
  9. ASPIRIN. [Concomitant]
     Active Substance: ASPIRIN
  10. LOPERAMIDE [Concomitant]
     Active Substance: LOPERAMIDE
  11. LOVENOX [Concomitant]
     Active Substance: ENOXAPARIN SODIUM
  12. RED YEAST RICE [Concomitant]
     Active Substance: DIETARY SUPPLEMENT
  13. ZOLPIDEM [Concomitant]
     Active Substance: ZOLPIDEM\ZOLPIDEM TARTRATE
  14. DECADRON [Concomitant]
     Active Substance: DEXAMETHASONE
  15. ONDANSETRON [Concomitant]
     Active Substance: ONDANSETRON
  16. SENNA [Concomitant]
     Active Substance: SENNA LEAF\SENNOSIDES\SENNOSIDES A AND B
  17. LORAZEPAM. [Concomitant]
     Active Substance: LORAZEPAM
  18. BEVACIZUMAB [Suspect]
     Active Substance: BEVACIZUMAB
     Indication: OESOPHAGEAL CANCER METASTATIC
     Dosage: DATE OF LAST DOSE 31/JUL/2014
     Route: 065
     Dates: start: 20140320
  19. LOMOTIL (UNITED STATES) [Concomitant]
  20. VITAMIN D3 [Concomitant]
     Active Substance: CHOLECALCIFEROL
  21. COLACE [Concomitant]
     Active Substance: DOCUSATE SODIUM
  22. OMEPRAZOLE. [Concomitant]
     Active Substance: OMEPRAZOLE

REACTIONS (3)
  - Tumour haemorrhage [Recovered/Resolved]
  - Anaemia [Recovered/Resolved]
  - Loss of consciousness [Recovered/Resolved]

NARRATIVE: CASE EVENT DATE: 20140805
